FAERS Safety Report 5966765-2 (Version None)
Quarter: 2008Q4

REPORT INFORMATION
  Report Type: 
  Country: None (occurrence: None)
  Receive Date: 20081125
  Receipt Date: 20081117
  Transmission Date: 20090506
  Serious: Yes (Other)
  Sender: FDA-Public Use
  Company Number: US-ASTRAZENECA-2008UW25777

PATIENT
  Age: 69 Year
  Sex: Female
  Weight: 95.3 kg

DRUGS (8)
  1. CRESTOR [Suspect]
     Indication: BLOOD CHOLESTEROL
     Route: 048
     Dates: start: 20080926, end: 20081102
  2. LOVAZA [Concomitant]
  3. DIOVAN [Concomitant]
  4. NORVASC [Concomitant]
  5. CALCIUM [Concomitant]
  6. ASPIRIN [Concomitant]
  7. CITRUCEL [Concomitant]
  8. GLUCOSAMINE CHONDROITIN [Concomitant]

REACTIONS (3)
  - ARTHRALGIA [None]
  - BURSITIS [None]
  - GAIT DISTURBANCE [None]
